FAERS Safety Report 7961371-2 (Version None)
Quarter: 2011Q4

REPORT INFORMATION
  Report Type: 
  Country: None (occurrence: None)
  Receive Date: 20111202
  Receipt Date: 20111202
  Transmission Date: 20120403
  Serious: Yes (Hospitalization)
  Sender: FDA-Public Use
  Company Number: None

PATIENT
  Age: 78 Year
  Sex: Male
  Weight: 68.9 kg

DRUGS (1)
  1. SULFAMETHOXAZOLE AND TRIMETHOPRIM [Suspect]
     Indication: CELLULITIS
     Dosage: 800/160 TAB BID PO
     Route: 048
     Dates: start: 20110713, end: 20110730

REACTIONS (5)
  - DEHYDRATION [None]
  - DIARRHOEA [None]
  - NEPHRITIS [None]
  - RENAL FAILURE ACUTE [None]
  - HYPERKALAEMIA [None]
